FAERS Safety Report 7309640-3 (Version None)
Quarter: 2011Q1

REPORT INFORMATION
  Report Type: 
  Country: None (occurrence: None)
  Receive Date: 20110224
  Receipt Date: 20110215
  Transmission Date: 20110831
  Serious: Yes (Death, Hospitalization, Other)
  Sender: FDA-Public Use
  Company Number: ES-AMGEN-ESPSP2011004123

PATIENT
  Age: 65 Year
  Sex: Male

DRUGS (2)
  1. ENBREL [Suspect]
     Indication: RHEUMATOID ARTHRITIS
     Dosage: UNK
     Route: 065
     Dates: start: 20030101, end: 20080610
  2. PREDNISONE [Concomitant]
     Dosage: UNK
     Route: 048
     Dates: end: 20091201

REACTIONS (6)
  - HEPATIC CANCER METASTATIC [None]
  - HORMONE LEVEL ABNORMAL [None]
  - NEUROENDOCRINE TUMOUR [None]
  - PNEUMONIA PNEUMOCOCCAL [None]
  - ABDOMINAL PAIN [None]
  - CELLULITIS [None]
